FAERS Safety Report 6132176-2 (Version None)
Quarter: 2009Q1

REPORT INFORMATION
  Report Type: 
  Country: None (occurrence: None)
  Receive Date: 20090325
  Receipt Date: 20090324
  Transmission Date: 20090719
  Serious: Yes (Other)
  Sender: FDA-Public Use
  Company Number: B0565918A

PATIENT
  Age: 63 Year
  Sex: Male

DRUGS (5)
  1. ROPINIROLE [Suspect]
     Route: 048
  2. CABERGOLINE [Concomitant]
     Dosage: 1MG PER DAY
  3. LEVODOPA [Concomitant]
     Dosage: 3TAB PER DAY
  4. OLANZAPINE [Concomitant]
     Dosage: 3MG PER DAY
  5. TRAZODONE HCL [Concomitant]
     Dosage: 50MG PER DAY

REACTIONS (7)
  - ABNORMAL BEHAVIOUR [None]
  - AGGRESSION [None]
  - AGITATION [None]
  - CONDITION AGGRAVATED [None]
  - EMOTIONAL DISORDER [None]
  - HALLUCINATION, VISUAL [None]
  - PORIOMANIA [None]
